FAERS Safety Report 13895246 (Version 1)
Quarter: 2017Q3

REPORT INFORMATION
  Report Type: Spontaneous
  Country: US (occurrence: US)
  Receive Date: 20170818
  Receipt Date: 20170818
  Transmission Date: 20171127
  Serious: Yes (Hospitalization)
  Sender: FDA-Public Use
  Company Number: None

PATIENT
  Age: 70 Year
  Sex: Female

DRUGS (18)
  1. OXYCONTIN [Concomitant]
     Active Substance: OXYCODONE HYDROCHLORIDE
  2. GABAPENTIN. [Concomitant]
     Active Substance: GABAPENTIN
  3. |METOPROLOL [Concomitant]
  4. JANUVIA [Concomitant]
     Active Substance: SITAGLIPTIN PHOSPHATE
  5. ENBREL [Suspect]
     Active Substance: ETANERCEPT
     Indication: RHEUMATOID ARTHRITIS
     Dosage: ?          OTHER FREQUENCY:WEEKLY;?
     Route: 058
     Dates: start: 20170719
  6. SPIRONOLACTONE. [Concomitant]
     Active Substance: SPIRONOLACTONE
  7. LIDOCAINE. [Concomitant]
     Active Substance: LIDOCAINE
  8. LOTREL [Concomitant]
     Active Substance: AMLODIPINE BESYLATE\BENAZEPRIL HYDROCHLORIDE
  9. FIORICET [Concomitant]
     Active Substance: ACETAMINOPHEN\BUTALBITAL\CAFFEINE
  10. BACLOFENE [Concomitant]
     Active Substance: BACLOFEN
  11. VESICARE [Concomitant]
     Active Substance: SOLIFENACIN SUCCINATE
  12. NAPROXEN. [Concomitant]
     Active Substance: NAPROXEN
  13. MECLIZINE [Concomitant]
     Active Substance: MECLIZINE HYDROCHLORIDE
  14. METHOTREXATE. [Concomitant]
     Active Substance: METHOTREXATE
  15. ATORVASTATIN [Concomitant]
     Active Substance: ATORVASTATIN
  16. FOLIC ACID. [Concomitant]
     Active Substance: FOLIC ACID
  17. TIZANIDINE. [Concomitant]
     Active Substance: TIZANIDINE
  18. RANITIDINE. [Concomitant]
     Active Substance: RANITIDINE

REACTIONS (3)
  - Infection [None]
  - Oropharyngeal pain [None]
  - Malaise [None]

NARRATIVE: CASE EVENT DATE: 20170803
